FAERS Safety Report 4516581-3 (Version None)
Quarter: 2004Q4

REPORT INFORMATION
  Report Type: 
  Country: None (occurrence: None)
  Receive Date: 20041202
  Receipt Date: 20041122
  Transmission Date: 20050328
  Serious: Yes (Other)
  Sender: FDA-Public Use
  Company Number: US-BRISTOL-MYERS SQUIBB COMPANY-12780672

PATIENT
  Age: 42 Year
  Sex: Female
  Weight: 76 kg

DRUGS (5)
  1. SERZONE [Suspect]
     Indication: DEPRESSION
     Dates: start: 19950215, end: 19950415
  2. SERTRALINE HCL [Concomitant]
     Dates: start: 19950101, end: 19980101
  3. PEPCID [Concomitant]
  4. PREDNISONE [Concomitant]
     Dosage: DOSE VALUE:  15 TO 20 MG
  5. DIPENTUM [Concomitant]
     Dosage: NUMBER OF DOSAGES:  3 TO 6 TIMES PER DAY.

REACTIONS (4)
  - DRUG INEFFECTIVE [None]
  - HEPATIC CIRRHOSIS [None]
  - HEPATIC FAILURE [None]
  - LIVER TRANSPLANT [None]
